FAERS Safety Report 9168617 (Version 2)
Quarter: 2013Q1

REPORT INFORMATION
  Report Type: Spontaneous
  Country: LV (occurrence: LV)
  Receive Date: 20130318
  Receipt Date: 20130322
  Transmission Date: 20140127
  Serious: Yes (Hospitalization, Other)
  Sender: FDA-Public Use
  Company Number: LV-PFIZER INC-2013086276

PATIENT
  Age: 74 Year
  Sex: Female

DRUGS (3)
  1. CORDARONE [Suspect]
     Indication: ATRIAL FIBRILLATION
     Dosage: 0.5 DOSE-FORM /DAY (100 MG/DAY)
     Route: 048
     Dates: start: 201101, end: 201302
  2. NORVASC [Concomitant]
     Dosage: UNK
     Dates: end: 201302
  3. CONCOR [Concomitant]
     Dosage: UNK
     Dates: end: 201302

REACTIONS (6)
  - Thyroid disorder [Recovering/Resolving]
  - Atrial fibrillation [Recovering/Resolving]
  - Hypertension [Recovering/Resolving]
  - Cardiac failure congestive [Recovering/Resolving]
  - Myocardial infarction [Recovering/Resolving]
  - Weight decreased [Recovering/Resolving]
